FAERS Safety Report 8236408 (Version 3)
Quarter: 2013Q4

REPORT INFORMATION
  Report Type: Spontaneous
  Country: US (occurrence: None)
  Receive Date: 20111028
  Receipt Date: 20131226
  Transmission Date: 20140711
  Serious: Yes (Life-Threatening)
  Sender: FDA-Public Use
  Company Number: PHEH2008US10936

PATIENT
  Sex: Female

DRUGS (8)
  1. TRILEPTAL [Suspect]
     Dosage: 7QD
     Dates: start: 2007
  2. OXCARBAZEPINE [Suspect]
  3. ATIVAN [Concomitant]
  4. THYROID THERAPY (NO INGREDIENTS/SUBSTANCES) [Concomitant]
  5. ZOLOFT [Concomitant]
  6. VITAMIN B (NO INGREDIENTS/SUBSTANCES) [Concomitant]
  7. MULTIVITAMINS (ASCORBIC ACID, ERGOCALCIFEROL, FOLIC ACID, NICOTINAMIDE, PANTHENOL, RETINOL, RIBOFLAV [Concomitant]
  8. ANTIHISTAMINES (NO INGREDIENTS/SUBSTANCES) [Concomitant]

REACTIONS (10)
  - Feeling abnormal [None]
  - Pain [None]
  - Mental impairment [None]
  - Gait disturbance [None]
  - Malaise [None]
  - Headache [None]
  - Drug ineffective [None]
  - Drug hypersensitivity [None]
  - Fatigue [None]
  - Sleep disorder [None]
